FAERS Safety Report 11309675 (Version 1)
Quarter: 2015Q3

REPORT INFORMATION
  Report Type: Spontaneous
  Country: GB (occurrence: GB)
  Receive Date: 20150724
  Receipt Date: 20150724
  Transmission Date: 20151125
  Serious: Yes (Hospitalization, Other)
  Sender: FDA-Public Use
  Company Number: GB-009507513-1003USA01921

PATIENT
  Age: 67 Year
  Sex: Female

DRUGS (7)
  1. FLUOROURACIL. [Suspect]
     Active Substance: FLUOROURACIL
     Indication: ANAL CANCER
  2. ACYCLOVIR. [Concomitant]
     Active Substance: ACYCLOVIR
     Indication: INFECTION PROPHYLAXIS
  3. FLUOROURACIL. [Suspect]
     Active Substance: FLUOROURACIL
     Indication: ANAL SQUAMOUS CELL CARCINOMA
     Dosage: , FOR THE FIRST FOUR DAYS, TO BE REPEATED FOR FOUR DAYS TOWARDS THE END OF RADIOTHERAPY.1 MG/M2, QD
     Route: 042
  4. MITOMYCIN. [Suspect]
     Active Substance: MITOMYCIN
     Indication: ANAL SQUAMOUS CELL CARCINOMA
     Dosage: ON THE FIRST DAY ONLY
     Route: 042
  5. MITOMYCIN. [Suspect]
     Active Substance: MITOMYCIN
     Indication: ANAL CANCER
  6. DECADRON [Suspect]
     Active Substance: DEXAMETHASONE
     Indication: PROPHYLAXIS OF NAUSEA AND VOMITING
     Dosage: 8 MG, QD FOR THE FIRST FOUR DAYS
     Route: 048
  7. SULFAMETHOXAZOLE (+) TRIMETHOPRIM [Concomitant]
     Active Substance: SULFAMETHOXAZOLE\TRIMETHOPRIM
     Indication: ANTIFUNGAL PROPHYLAXIS

REACTIONS (10)
  - Dyspnoea [Recovered/Resolved]
  - Stridor [Recovered/Resolved]
  - Epiglottic oedema [Recovered/Resolved]
  - Skin exfoliation [Recovered/Resolved]
  - Respiratory moniliasis [Unknown]
  - Respiratory moniliasis [Recovered/Resolved]
  - CD4 lymphocytes decreased [Recovered/Resolved]
  - Tracheostomy [Recovered/Resolved]
  - Lymphocyte count decreased [Recovered/Resolved]
  - Oral candidiasis [Recovered/Resolved]
